FAERS Safety Report 10909660 (Version 1)
Quarter: 2015Q1

REPORT INFORMATION
  Report Type: Spontaneous
  Country: US (occurrence: US)
  Receive Date: 20150312
  Receipt Date: 20150312
  Transmission Date: 20150721
  Serious: No
  Sender: FDA-Public Use
  Company Number: US-SA-2014SA069372

PATIENT
  Age: 69 Year
  Sex: Male
  Weight: 52.16 kg

DRUGS (2)
  1. NASACORT ALLERGY 24HR [Suspect]
     Active Substance: TRIAMCINOLONE ACETONIDE
     Indication: RHINITIS ALLERGIC
     Dosage: DOSE: 1 SPRAY IN EACH NOSTRIL
     Route: 045
     Dates: start: 20140507, end: 20140613
  2. FLOMAX [Concomitant]
     Active Substance: TAMSULOSIN HYDROCHLORIDE
     Indication: URINE OUTPUT INCREASED
     Route: 065
     Dates: start: 2001

REACTIONS (2)
  - Underdose [Unknown]
  - Epistaxis [Recovered/Resolved]

NARRATIVE: CASE EVENT DATE: 20140514
